FAERS Safety Report 5450940-X (Version None)
Quarter: 2007Q3

REPORT INFORMATION
  Report Type: 
  Country: None (occurrence: None)
  Receive Date: 20070911
  Receipt Date: 20070830
  Transmission Date: 20080115
  Serious: Yes (Hospitalization)
  Sender: FDA-Public Use
  Company Number: 163-C5013-07060764

PATIENT
  Age: 51 Year
  Sex: Female
  Weight: 90.1 kg

DRUGS (22)
  1. CC-5013 (LENALIDOMIDE) (5 MILLIGRAM, CAPSULES) [Suspect]
     Indication: COMPLEX REGIONAL PAIN SYNDROME
     Dosage: 10 MG, 2 IN 1 D, ORAL
     Route: 048
     Dates: start: 20051219, end: 20070726
  2. ORPHENADRINE CR (ORPHENADRINE) (100 MILLIGRAM, TABLETS) [Concomitant]
  3. OXYCODONE SR (OXYCODONE) (80 MILLIGRAM, TABLETS) [Concomitant]
  4. OXYCODONE/ APAP (OXYCODONE/ APAP) [Concomitant]
  5. TRAMADOL (TRAMADOL) (50 MILLIGRAM, TABLETS) [Concomitant]
  6. NEOMYCIN POLYMYXIN B SULFATE/ HYDROCORTISONE (OTOSPORIN) (EAR DROPS) [Concomitant]
  7. BACLOFEN [Concomitant]
  8. TOPROL XL (METOPROLOL SUCCINATE) (TABLETS) [Concomitant]
  9. COMPAZINE (PROCHLORPERAZINE EDISYLATE) (TABLETS) [Concomitant]
  10. PHENERGAN (PROMETHAZINE HYDROCHLORIDE) (50 MILLIGRAM, TABLETS) [Concomitant]
  11. COLACE (DOCUSATE SODIUM) [Concomitant]
  12. EFFEXOR XR [Concomitant]
  13. OMEPRAZOLE MAGNESIUM (OMEPRAZOLE MAGNESIUM) [Concomitant]
  14. HYZAAR (HYZAAR) (TABLETS) [Concomitant]
  15. ZANTAC (RANITIDINE HYDROCHLORIDE) (75 MILLIGRAM, TABLETS) [Concomitant]
  16. DETROL [Concomitant]
  17. SULFACETAMIDE SODIUM [Concomitant]
  18. HYDROXYZINE [Concomitant]
  19. PREDNISONE TAB [Concomitant]
  20. HYDROCHLOROTHIAZIDE [Concomitant]
  21. LOSARTAN POTASSIUM [Concomitant]
  22. MANTOUX (TUBERCULIN PPD) [Concomitant]

REACTIONS (31)
  - ALVEOLITIS ALLERGIC [None]
  - ASPIRATION [None]
  - BERYLLIOSIS [None]
  - BRONCHOALVEOLAR LAVAGE ABNORMAL [None]
  - CHEST PAIN [None]
  - DECREASED APPETITE [None]
  - DYSPHAGIA [None]
  - FLANK PAIN [None]
  - FUNGAL INFECTION [None]
  - GOITRE [None]
  - GRANULOMA [None]
  - HAEMORRHAGE [None]
  - HEADACHE [None]
  - HEART RATE INCREASED [None]
  - HEPATIC STEATOSIS [None]
  - LUNG CONSOLIDATION [None]
  - LUNG DISORDER [None]
  - LUNG INFILTRATION [None]
  - MUSCULOSKELETAL CHEST PAIN [None]
  - PLEURITIC PAIN [None]
  - PNEUMONIA [None]
  - PNEUMONIA ASPIRATION [None]
  - PNEUMONIA PRIMARY ATYPICAL [None]
  - PULMONARY INFARCTION [None]
  - RESPIRATORY TRACT INFECTION [None]
  - SARCOIDOSIS [None]
  - SINUSITIS [None]
  - SPUTUM CULTURE POSITIVE [None]
  - THYROID CANCER [None]
  - THYROID MASS [None]
  - WEIGHT DECREASED [None]
